FAERS Safety Report 5949460-5 (Version None)
Quarter: 2008Q4

REPORT INFORMATION
  Report Type: 
  Country: None (occurrence: None)
  Receive Date: 20081112
  Receipt Date: 20081103
  Transmission Date: 20090506
  Serious: Yes (Other)
  Sender: FDA-Public Use
  Company Number: PHHY2008TR27418

PATIENT
  Age: 54 Year
  Sex: Female

DRUGS (3)
  1. FORADIL COMBI [Suspect]
     Indication: CHRONIC OBSTRUCTIVE PULMONARY DISEASE
     Dosage: UNK
     Dates: end: 20081101
  2. MIFLONIDE [Concomitant]
  3. FORADIL [Concomitant]

REACTIONS (5)
  - FATIGUE [None]
  - MIGRAINE [None]
  - NAUSEA [None]
  - TACHYCARDIA [None]
  - VOMITING [None]
